FAERS Safety Report 8642821 (Version 8)
Quarter: 2013Q2

REPORT INFORMATION
  Report Type: Report from Study
  Country: CA (occurrence: CA)
  Receive Date: 20120629
  Receipt Date: 20130621
  Transmission Date: 20140414
  Serious: Yes (Death, Other)
  Sender: FDA-Public Use
  Company Number: PHHY2012CA030447

PATIENT
  Age: 60 Year
  Sex: Male

DRUGS (5)
  1. SANDOSTATIN LAR [Suspect]
     Indication: CARCINOID TUMOUR
     Dosage: 30 MG, EVERY 4 WEEKS
     Route: 030
     Dates: start: 20040717
  2. SANDOSTATIN LAR [Suspect]
     Indication: CARCINOID SYNDROME
     Dosage: 30 MG, EVERY 3 WEEKS
     Route: 030
  3. SANDOSTATIN LAR [Suspect]
     Dosage: 60 MG, EVERY 4 WEEKS
     Route: 030
     Dates: end: 20130425
  4. SANDOSTATIN LAR [Suspect]
     Dosage: 60 MG, ONCE A MONTH
     Route: 030
     Dates: start: 2004, end: 2013
  5. SANDOSTATIN [Suspect]
     Indication: CARCINOID SYNDROME
     Dosage: 400 MG, BID
     Route: 058
     Dates: start: 2004, end: 2013

REACTIONS (8)
  - Malignant neoplasm progression [Fatal]
  - Renal disorder [Unknown]
  - Flushing [Not Recovered/Not Resolved]
  - Increased upper airway secretion [Unknown]
  - Productive cough [Unknown]
  - Palpitations [Unknown]
  - Abdominal discomfort [Unknown]
  - Malaise [Unknown]
